FAERS Safety Report 5185481-0 (Version None)
Quarter: 2006Q4

REPORT INFORMATION
  Report Type: 
  Country: None (occurrence: None)
  Receive Date: 20061220
  Receipt Date: 20060727
  Transmission Date: 20070319
  Serious: No
  Sender: FDA-Public Use
  Company Number: US-GLAXOSMITHKLINE-A0613812A

PATIENT
  Age: 37 Year
  Sex: Male

DRUGS (2)
  1. NICODERM CQ [Suspect]
     Indication: DRUG WITHDRAWAL MAINTENANCE THERAPY
     Dosage: 14MG PER DAY
     Route: 062
  2. NICODERM CQ [Suspect]
     Dosage: 7MG PER DAY
     Route: 062

REACTIONS (1)
  - INTENTIONAL DRUG MISUSE [None]
